FAERS Safety Report 19438281 (Version 2)
Quarter: 2021Q3

REPORT INFORMATION
  Report Type: Spontaneous
  Country: IT (occurrence: IT)
  Receive Date: 20210618
  Receipt Date: 20210817
  Transmission Date: 20211014
  Serious: Yes (Other)
  Sender: FDA-Public Use
  Company Number: IT-PFIZER INC-2021688721

PATIENT
  Age: 20 Year
  Sex: Male

DRUGS (9)
  1. DAUNORUBICIN HCL [Suspect]
     Active Substance: DAUNORUBICIN HYDROCHLORIDE
     Indication: ACUTE MYELOID LEUKAEMIA
     Dosage: 60 MG/M2/DAY ON DAY 1 TO DAY3
  2. DAUNORUBICIN HCL [Suspect]
     Active Substance: DAUNORUBICIN HYDROCHLORIDE
     Dosage: 35 MG/M2/DAY ON DAY 1 TO DAY 2
  3. DAUNORUBICIN HCL [Suspect]
     Active Substance: DAUNORUBICIN HYDROCHLORIDE
     Dosage: 60 MG/M2/DAY ON DAY 1 TO DAY 2
  4. CYTARABINE. [Suspect]
     Active Substance: CYTARABINE
     Indication: ACUTE MYELOID LEUKAEMIA
     Dosage: 200 MG/M2/DAY ON DAY 1 TO DAY 7
  5. MYLOTARG [Suspect]
     Active Substance: GEMTUZUMAB OZOGAMICIN
     Indication: ACUTE MYELOID LEUKAEMIA
     Dosage: 3MG/M2/DOSE (UP TO A TO MAXIMUM OF ONE 5 MG  VIAL) ON DAYS 1, 4, AND 7
  6. CYTARABINE. [Suspect]
     Active Substance: CYTARABINE
     Dosage: 1 G/M2/EVERY 12 HOURS ON DAY 1 TO DAY 3
  7. CYTARABINE. [Suspect]
     Active Substance: CYTARABINE
     Dosage: 1 G/M2/EVERY 12 HOURS ON DAY 1 TO DAY 4
  8. MYLOTARG [Suspect]
     Active Substance: GEMTUZUMAB OZOGAMICIN
     Dosage: 3 MG/M2/DOSE (UP TO A TO MAXIMUM OF ONE 5 MG  VIAL) ON DAY1
  9. DAUNORUBICIN HCL [Suspect]
     Active Substance: DAUNORUBICIN HYDROCHLORIDE
     Dosage: 60 MG/M2/DAY ON DAY 1

REACTIONS (6)
  - Pyrexia [Unknown]
  - Epistaxis [Unknown]
  - White blood cell count decreased [Unknown]
  - Klebsiella infection [Unknown]
  - Haemoglobin decreased [Unknown]
  - Blood lactate dehydrogenase increased [Unknown]
